FAERS Safety Report 10250671 (Version 1)
Quarter: 2014Q2

REPORT INFORMATION
  Report Type: Spontaneous
  Country: US (occurrence: US)
  Receive Date: 20140620
  Receipt Date: 20140620
  Transmission Date: 20141212
  Serious: Yes (Hospitalization, Other)
  Sender: FDA-Public Use
  Company Number: US-GLAXOSMITHKLINE-B1005739A

PATIENT
  Age: 66 Year
  Sex: Female

DRUGS (1)
  1. MELPHALAN [Suspect]
     Indication: LEIOMYOSARCOMA METASTATIC
     Route: 050
     Dates: start: 201002

REACTIONS (3)
  - Bone marrow failure [Recovered/Resolved]
  - Thrombocytopenia [Unknown]
  - Neutropenia [Unknown]
